FAERS Safety Report 8810302 (Version 1)
Quarter: 2012Q4

REPORT INFORMATION
  Report Type: 
  Country: MY (occurrence: MY)
  Receive Date: 20120926
  Receipt Date: 20120926
  Transmission Date: 20130627
  Serious: Yes (Death)
  Sender: FDA-Public Use
  Company Number: PHHO2005MY03364

PATIENT
  Sex: Male

DRUGS (2)
  1. GLIVEC [Suspect]
     Indication: METASTASES TO LIVER
     Dosage: 200 mg, QD
     Route: 048
     Dates: start: 20040426
  2. TRAMAL [Concomitant]

REACTIONS (1)
  - Intestinal obstruction [Fatal]
